FAERS Safety Report 12849518 (Version 1)
Quarter: 2016Q4

REPORT INFORMATION
  Report Type: Spontaneous
  Country: NL (occurrence: NL)
  Receive Date: 20161014
  Receipt Date: 20161014
  Transmission Date: 20170207
  Serious: Yes (Other)
  Sender: FDA-Public Use
  Company Number: NL-PFIZER INC-2016403380

PATIENT
  Age: 28 Year
  Sex: Female
  Weight: 58 kg

DRUGS (1)
  1. DEPO-PROVERA [Suspect]
     Active Substance: MEDROXYPROGESTERONE ACETATE
     Indication: CONTRACEPTION
     Dosage: UNK
     Route: 030
     Dates: start: 2010, end: 201409

REACTIONS (3)
  - Poor response to ovulation induction [Not Recovered/Not Resolved]
  - Endometrium arrested stage [Not Recovered/Not Resolved]
  - Infertility female [Not Recovered/Not Resolved]

NARRATIVE: CASE EVENT DATE: 201501
